FAERS Safety Report 8348935-1 (Version None)
Quarter: 2012Q2

REPORT INFORMATION
  Report Type: 
  Country: None (occurrence: None)
  Receive Date: 20120508
  Receipt Date: 20120425
  Transmission Date: 20120825
  Serious: Yes (Other)
  Sender: FDA-Public Use
  Company Number: 2012SP012674

PATIENT
  Age: 31 Year
  Sex: Female
  Weight: 70 kg

DRUGS (3)
  1. NEXPLANON [Suspect]
     Indication: CONTRACEPTION
     Dosage: ; SC
     Route: 058
     Dates: start: 20120111, end: 20120316
  2. MESALAMINE [Concomitant]
  3. NEXPLANON [Suspect]

REACTIONS (4)
  - DEVICE DISLOCATION [None]
  - ABORTION MISSED [None]
  - PREGNANCY WITH IMPLANT CONTRACEPTIVE [None]
  - MATERNAL EXPOSURE DURING PREGNANCY [None]
